FAERS Safety Report 4663965-9 (Version None)
Quarter: 2005Q2

REPORT INFORMATION
  Report Type: 
  Country: None (occurrence: None)
  Receive Date: 20050425
  Receipt Date: 20050315
  Transmission Date: 20051028
  Serious: Yes (Other)
  Sender: FDA-Public Use
  Company Number: 17240

PATIENT
  Age: 57 Year
  Sex: Female
  Weight: 68.4932 kg

DRUGS (2)
  1. DICYCLOMINE HCL [Suspect]
     Indication: DEHYDRATION
     Dosage: DOSE UNKNOWN/1X/IM
     Route: 030
     Dates: start: 20050314
  2. LISINOPRIL [Concomitant]

REACTIONS (1)
  - PAIN [None]
